FAERS Safety Report 5526298-4 (Version None)
Quarter: 2007Q4

REPORT INFORMATION
  Report Type: 
  Country: None (occurrence: None)
  Receive Date: 20071123
  Receipt Date: 20061201
  Transmission Date: 20080405
  Serious: Yes (Life-Threatening, Other)
  Sender: FDA-Public Use
  Company Number: US-JNJFOC-20060801612

PATIENT
  Age: 54 Year
  Sex: Female
  Weight: 29.4838 kg

DRUGS (1)
  1. LEVAQUIN [Suspect]
     Indication: PROPHYLAXIS
     Dosage: 500 MG, INTRAVENOUS
     Route: 042
     Dates: start: 20060804, end: 20060804

REACTIONS (2)
  - DYSPNOEA [None]
  - PARALYSIS [None]
